APPROVED DRUG PRODUCT: ZOVIRAX
Active Ingredient: ACYCLOVIR
Strength: 200MG/5ML **Federal Register determination that product was not discontinued or withdrawn for safety or effectiveness reasons**
Dosage Form/Route: SUSPENSION;ORAL
Application: N019909 | Product #001
Applicant: PHARMOBEDIENT CONSULTING LLC
Approved: Dec 22, 1989 | RLD: Yes | RS: No | Type: DISCN